FAERS Safety Report 7734923-2 (Version None)
Quarter: 2011Q3

REPORT INFORMATION
  Report Type: 
  Country: None (occurrence: None)
  Receive Date: 20110907
  Receipt Date: 20110901
  Transmission Date: 20111222
  Serious: Yes (Other)
  Sender: FDA-Public Use
  Company Number: PHHY2011NO57614

PATIENT
  Sex: Male

DRUGS (1)
  1. AFINITOR [Suspect]
     Indication: RENAL CANCER
     Dosage: 10 MG, UNK
     Dates: start: 20110427, end: 20110620

REACTIONS (4)
  - PULMONARY OEDEMA [None]
  - BONE MARROW FAILURE [None]
  - HYPOMETABOLISM [None]
  - PNEUMONITIS [None]
